FAERS Safety Report 7335147-3 (Version None)
Quarter: 2011Q1

REPORT INFORMATION
  Report Type: 
  Country: None (occurrence: None)
  Receive Date: 20110307
  Receipt Date: 20110228
  Transmission Date: 20110831
  Serious: Yes (Other)
  Sender: FDA-Public Use
  Company Number: US-JNJFOC-20110300997

PATIENT
  Age: 65 Year
  Sex: Female
  Weight: 65.77 kg

DRUGS (10)
  1. IMODIUM MULTI-SYMPTOM RELIEF [Suspect]
     Route: 048
  2. XANAX [Concomitant]
     Indication: ANXIETY
     Route: 048
  3. MELOXICAM [Concomitant]
     Indication: PAIN
     Route: 048
  4. LEXAPRO [Concomitant]
     Indication: BIPOLAR DISORDER
     Dosage: 1 IN AM, SINCE A COUPLE OF YEARS
     Route: 048
  5. IMODIUM MULTI-SYMPTOM RELIEF [Suspect]
     Indication: DIARRHOEA
     Route: 048
  6. KLONOPIN [Concomitant]
     Indication: ANXIETY
     Dosage: 1 IN PM
     Route: 048
  7. TRILIPIX [Concomitant]
     Indication: BLOOD CHOLESTEROL INCREASED
     Dosage: UNKNOWN DOSE, 1 IN THE PM
     Route: 048
  8. TRILIPIX [Concomitant]
     Indication: DIABETES MELLITUS
     Dosage: UNKNOWN DOSE, 1 IN THE PM
     Route: 048
  9. ESTRADIOL [Concomitant]
     Indication: HORMONE REPLACEMENT THERAPY
     Route: 048
  10. SEROQUEL [Concomitant]
     Indication: SLEEP DISORDER
     Dosage: 1 IN PM
     Route: 048

REACTIONS (3)
  - DRUG DEPENDENCE [None]
  - OVERDOSE [None]
  - INCORRECT DOSE ADMINISTERED [None]
